APPROVED DRUG PRODUCT: FENOFIBRATE
Active Ingredient: FENOFIBRATE
Strength: 107MG
Dosage Form/Route: TABLET;ORAL
Application: A076520 | Product #002
Applicant: MYLAN PHARMACEUTICALS INC
Approved: Dec 29, 2005 | RLD: No | RS: No | Type: DISCN